FAERS Safety Report 7113068-9 (Version None)
Quarter: 2010Q4

REPORT INFORMATION
  Report Type: 
  Country: None (occurrence: None)
  Receive Date: 20101119
  Receipt Date: 20101110
  Transmission Date: 20110411
  Serious: Yes (Other)
  Sender: FDA-Public Use
  Company Number: US-JNJFOC-20101104433

PATIENT
  Age: 43 Year
  Sex: Female
  Weight: 59.88 kg

DRUGS (2)
  1. CONCERTA [Suspect]
     Indication: ANXIETY
     Route: 048
  2. WELLBUTRIN [Concomitant]
     Indication: ANXIETY
     Dosage: 300 XL
     Route: 048

REACTIONS (6)
  - DEPRESSION [None]
  - DIZZINESS [None]
  - HEADACHE [None]
  - IRRITABILITY [None]
  - OFF LABEL USE [None]
  - WEIGHT INCREASED [None]
